FAERS Safety Report 9524250 (Version 1)
Quarter: 2013Q1

REPORT INFORMATION
  Report Type: Spontaneous
  Country: US (occurrence: None)
  Receive Date: 20130305
  Receipt Date: 20130305
  Transmission Date: 20140127
  Serious: Yes (Hospitalization)
  Sender: FDA-Public Use
  Company Number: 163-21880-12033556

PATIENT
  Age: 67 Year
  Sex: Female

DRUGS (5)
  1. REVLIMID (LENALIDOMIDE) (25 MILLIGRAM, CAPSULES) [Suspect]
     Indication: PLASMA CELL MYELOMA
     Dosage: 21, PO
     Route: 048
     Dates: start: 20111221
  2. FUROSEMIDE (FUROSEMIDE) (UNKNOWN) [Concomitant]
  3. LISINOPRIL (LISINOPRIL) (UNKNOWN) [Concomitant]
  4. VITAMIN D (ERGOCALCIFEROL) (UNKNOWN) [Concomitant]
  5. DEXAMETHASONE (DEXAMETHASONE) (UNKNOWN) [Concomitant]

REACTIONS (1)
  - Back pain [None]
